FAERS Safety Report 6930624-9 (Version None)
Quarter: 2010Q3

REPORT INFORMATION
  Report Type: 
  Country: None (occurrence: None)
  Receive Date: 20100813
  Receipt Date: 20100803
  Transmission Date: 20110219
  Serious: Yes (Other)
  Sender: FDA-Public Use
  Company Number: 016506

PATIENT
  Age: 24 Year
  Sex: Female

DRUGS (2)
  1. KEPPRA [Suspect]
     Indication: EPILEPSY
     Dosage: 750 MG BID, (REDUCED DOSE)
  2. TOPAMAX [Concomitant]

REACTIONS (1)
  - PARKINSONISM [None]
